FAERS Safety Report 5581777-9 (Version None)
Quarter: 2008Q1

REPORT INFORMATION
  Report Type: 
  Country: None (occurrence: None)
  Receive Date: 20080104
  Receipt Date: 20071226
  Transmission Date: 20080703
  Serious: Yes (Other)
  Sender: FDA-Public Use
  Company Number: JP-PFIZER INC-2007083489

PATIENT
  Sex: Male

DRUGS (5)
  1. CARDENALIN [Suspect]
     Indication: HYPERTENSION
     Route: 048
     Dates: start: 20070214, end: 20070926
  2. OLMETEC [Suspect]
     Indication: HYPERTENSION
     Route: 048
  3. CALBLOCK [Concomitant]
     Indication: HYPERTENSION
     Route: 048
  4. AMLODIN [Concomitant]
     Indication: THERAPEUTIC RESPONSE DECREASED
     Route: 048
     Dates: start: 20060415, end: 20070117
  5. NU LOTAN [Concomitant]
     Indication: THERAPEUTIC RESPONSE DECREASED
     Dates: start: 20060419, end: 20061011

REACTIONS (1)
  - ERECTILE DYSFUNCTION [None]
